FAERS Safety Report 9523886 (Version 1)
Quarter: 2013Q1

REPORT INFORMATION
  Report Type: Spontaneous
  Country: US (occurrence: None)
  Receive Date: 20130305
  Receipt Date: 20130305
  Transmission Date: 20140127
  Serious: Yes (Other)
  Sender: FDA-Public Use
  Company Number: 163-21880-12012886

PATIENT
  Age: 69 Year
  Sex: Female
  Weight: 81.65 kg

DRUGS (3)
  1. REVLIMID [Suspect]
     Indication: PLASMA CELL MYELOMA
     Dosage: 5 MG, 1 IN 1 D, PO
     Route: 048
     Dates: start: 201109
  2. ALLERGY PILLS (ALL OTHER THERAPEUTIC PRODUCTS) (UNKNOWN) [Concomitant]
  3. BLOOD PRESSURE PILLS (ALL OTHER THERAPEUTIC PRODUCTS) (UNKNOWN) [Concomitant]

REACTIONS (4)
  - Thrombosis [None]
  - Fatigue [None]
  - Aphagia [None]
  - Stomatitis [None]
